FAERS Safety Report 7778313-5 (Version None)
Quarter: 2011Q3

REPORT INFORMATION
  Report Type: 
  Country: None (occurrence: None)
  Receive Date: 20110926
  Receipt Date: 20110912
  Transmission Date: 20111222
  Serious: No
  Sender: FDA-Public Use
  Company Number: US-BAYER-2011-084682

PATIENT
  Age: 75 Year
  Sex: Female

DRUGS (2)
  1. ULTRAVIST 150 [Suspect]
     Indication: NUCLEAR MAGNETIC RESONANCE IMAGING
     Dosage: UNK
     Dates: start: 20110912, end: 20110912
  2. ULTRAVIST 150 [Suspect]
     Dosage: UNK
     Route: 042
     Dates: start: 20110912, end: 20110912

REACTIONS (2)
  - DYSPNOEA [None]
  - NAUSEA [None]
